FAERS Safety Report 5154413-3 (Version None)
Quarter: 2006Q4

REPORT INFORMATION
  Report Type: 
  Country: None (occurrence: None)
  Receive Date: 20061120
  Receipt Date: 20061024
  Transmission Date: 20070319
  Serious: Yes (Death, Hospitalization, Other)
  Sender: FDA-Public Use
  Company Number: ES-NOVOPROD-257991

PATIENT
  Sex: Male
  Weight: 57 kg

DRUGS (5)
  1. NOVOSEVEN [Suspect]
     Indication: CEREBRAL HAEMORRHAGE
     Dosage: 1 DOSE
     Route: 042
     Dates: start: 20061020, end: 20061020
  2. INSULIN [Concomitant]
     Dosage: 4 IU, QD
     Route: 042
     Dates: start: 20061020, end: 20061023
  3. FUROSEMIDE [Concomitant]
     Dosage: 20 MG, QD
     Route: 042
     Dates: start: 20061020, end: 20061026
  4. OMEPRAZOL                          /00661201/ [Concomitant]
     Dosage: 20 MG, QD
     Route: 042
     Dates: start: 20061020, end: 20061026
  5. SALBUTAMOL [Concomitant]
     Dosage: 1 UNK, UNK
     Route: 055
     Dates: start: 20061026, end: 20061026

REACTIONS (3)
  - PULMONARY EMBOLISM [None]
  - RESPIRATORY FAILURE [None]
  - RESPIRATORY TRACT INFECTION [None]
